FAERS Safety Report 5756583-2 (Version None)
Quarter: 2008Q2

REPORT INFORMATION
  Report Type: 
  Country: None (occurrence: None)
  Receive Date: 20080528
  Receipt Date: 20080519
  Transmission Date: 20081010
  Serious: Yes (Death)
  Sender: FDA-Public Use
  Company Number: 2008SP005825

PATIENT
  Age: 42 Year
  Sex: Male
  Weight: 119.9311 kg

DRUGS (17)
  1. PEG-INTRON [Suspect]
     Indication: HEPATITIS C
     Dosage: 150 MCG; QW; SC; 150 MCG; QW; SC
     Route: 058
     Dates: start: 20071217, end: 20080101
  2. PEG-INTRON [Suspect]
     Indication: HEPATITIS C
     Dosage: 150 MCG; QW; SC; 150 MCG; QW; SC
     Route: 058
     Dates: start: 20080101
  3. REBETOL [Suspect]
     Indication: HEPATITIS C
     Dosage: 1000 MG; QD; PO
     Route: 048
     Dates: start: 20071217
  4. ALPRAZOLAM [Suspect]
     Indication: ANXIETY
  5. COCAINE [Suspect]
     Indication: DRUG USE FOR UNKNOWN INDICATION
  6. METFORMIN ER (CON.) [Concomitant]
  7. ASPIRIN (CON.) [Concomitant]
  8. ATENOLOL (CON.) [Concomitant]
  9. CITALOPRAM (CON.) [Concomitant]
  10. GLIMEPIRIDE (CON.) [Concomitant]
  11. HYDROCHLOROTHIAZIDE (CON.) [Concomitant]
  12. LISINOPRIL (CON.) [Concomitant]
  13. LOVASTATIN (CON.) [Concomitant]
  14. MULTIVITAMINS (CON.) [Concomitant]
  15. QUETIAPINE (CON.) [Concomitant]
  16. SILDENAFIL (CON.) [Concomitant]
  17. ZOLPIDEM (CON.) [Concomitant]

REACTIONS (30)
  - ACCIDENTAL DEATH [None]
  - ALANINE AMINOTRANSFERASE INCREASED [None]
  - ANOXIC ENCEPHALOPATHY [None]
  - ANXIETY [None]
  - AREFLEXIA [None]
  - ASPARTATE AMINOTRANSFERASE INCREASED [None]
  - BLOOD GLUCOSE INCREASED [None]
  - BLOOD LACTATE DEHYDROGENASE INCREASED [None]
  - BLOOD LACTIC ACID DECREASED [None]
  - BLOOD PH DECREASED [None]
  - BRAIN COMPRESSION [None]
  - CEREBRAL ISCHAEMIA [None]
  - DECREASED APPETITE [None]
  - DEPRESSION [None]
  - DRUG ABUSE [None]
  - DRUG LEVEL ABOVE THERAPEUTIC [None]
  - DRUG SCREEN POSITIVE [None]
  - DRY SKIN [None]
  - DYSPNOEA EXERTIONAL [None]
  - FATIGUE [None]
  - HYDROCEPHALUS [None]
  - HYPOTHERMIA [None]
  - INFLUENZA LIKE ILLNESS [None]
  - INJECTION SITE BRUISING [None]
  - NEUTROPENIA [None]
  - PAIN [None]
  - PCO2 DECREASED [None]
  - RESPIRATORY ARREST [None]
  - SLEEP APNOEA SYNDROME [None]
  - UNRESPONSIVE TO STIMULI [None]
